FAERS Safety Report 15609282 (Version 1)
Quarter: 2018Q4

REPORT INFORMATION
  Report Type: Spontaneous
  Country: RU (occurrence: RU)
  Receive Date: 20181113
  Receipt Date: 20181113
  Transmission Date: 20190205
  Serious: Yes (Other)
  Sender: FDA-Public Use
  Company Number: PHHY2018RU152695

PATIENT
  Age: 56 Year
  Sex: Male

DRUGS (2)
  1. CANDIBIOTIC [Suspect]
     Active Substance: BECLOMETHASONE\CHLORAMPHENICOL\CLOTRIMAZOLE\LIDOCAINE
     Indication: EAR INFECTION
     Dosage: UNK
     Route: 065
  2. AMOXICLAV [Suspect]
     Active Substance: AMOXICILLIN\CLAVULANATE POTASSIUM
     Indication: PRODUCT USED FOR UNKNOWN INDICATION
     Dosage: UNK
     Route: 048
     Dates: start: 20180717

REACTIONS (4)
  - Hyperaemia [Recovering/Resolving]
  - Face oedema [Recovering/Resolving]
  - Rash [Recovering/Resolving]
  - Pruritus [Recovering/Resolving]

NARRATIVE: CASE EVENT DATE: 20180717
